FAERS Safety Report 4964047-9 (Version None)
Quarter: 2006Q2

REPORT INFORMATION
  Report Type: 
  Country: None (occurrence: None)
  Receive Date: 20060405
  Receipt Date: 20060228
  Transmission Date: 20061013
  Serious: Yes (Hospitalization)
  Sender: FDA-Public Use
  Company Number: JP-MERCK-0603USA02314

PATIENT
  Age: 68 Year
  Sex: Female

DRUGS (10)
  1. SINGULAIR [Suspect]
     Indication: ASTHMA
     Route: 048
     Dates: start: 20060223, end: 20060228
  2. SINGULAIR [Suspect]
     Route: 048
     Dates: start: 20051001
  3. SEREVENT [Concomitant]
     Route: 065
     Dates: start: 20060223
  4. PREDONINE [Concomitant]
     Route: 048
  5. ANPLAG [Concomitant]
     Route: 048
  6. EPADEL [Concomitant]
     Route: 048
  7. CEPHADOL [Concomitant]
     Route: 048
  8. NU-LOTAN [Concomitant]
     Route: 048
  9. DOMENAN [Concomitant]
     Route: 065
  10. SERATRODAST [Concomitant]
     Route: 065
     Dates: start: 20060223, end: 20060228

REACTIONS (5)
  - DYSPEPSIA [None]
  - HEADACHE [None]
  - MUSCULOSKELETAL PAIN [None]
  - MYALGIA [None]
  - PALPITATIONS [None]
